FAERS Safety Report 13712479 (Version 1)
Quarter: 2017Q3

REPORT INFORMATION
  Report Type: Spontaneous
  Country: US (occurrence: US)
  Receive Date: 20170703
  Receipt Date: 20170703
  Transmission Date: 20171127
  Serious: No
  Sender: FDA-Public Use
  Company Number: US-JNJFOC-20170429582

PATIENT
  Age: 60 Year
  Sex: Female
  Weight: 72.58 kg

DRUGS (1)
  1. STELARA [Suspect]
     Active Substance: USTEKINUMAB
     Indication: PSORIASIS
     Route: 058
     Dates: start: 2013

REACTIONS (5)
  - Agitation [Unknown]
  - Needle issue [Unknown]
  - Inappropriate schedule of drug administration [Unknown]
  - Incorrect dose administered [Unknown]
  - Drug dose omission [Unknown]

NARRATIVE: CASE EVENT DATE: 2013
